FAERS Safety Report 17597825 (Version 8)
Quarter: 2021Q1

REPORT INFORMATION
  Report Type: Spontaneous
  Country: US (occurrence: US)
  Receive Date: 20200330
  Receipt Date: 20210120
  Transmission Date: 20210419
  Serious: Yes (Other)
  Sender: FDA-Public Use
  Company Number: US-PFIZER INC-2020128325

PATIENT
  Age: 66 Year
  Sex: Female

DRUGS (3)
  1. XELJANZ XR [Suspect]
     Active Substance: TOFACITINIB CITRATE
     Dosage: UNK (TAKING IT AS PRESCRIBED)
     Dates: start: 2020, end: 2020
  2. XELJANZ XR [Suspect]
     Active Substance: TOFACITINIB CITRATE
     Dosage: 11 MG, ALTERNATE DAY [SHE FIRST STARTED THERAPY SHE WOULD TAKE IT EVERY OTHER DAY]
     Dates: start: 202002, end: 2020
  3. XELJANZ XR [Suspect]
     Active Substance: TOFACITINIB CITRATE
     Dosage: 11 MG
     Dates: start: 202011

REACTIONS (12)
  - Pruritus [Unknown]
  - Faeces discoloured [Recovered/Resolved]
  - Skin hypertrophy [Unknown]
  - Intentional product misuse [Unknown]
  - Mycobacterium avium complex infection [Unknown]
  - Diarrhoea [Recovered/Resolved]
  - Dry skin [Unknown]
  - Product dose omission issue [Unknown]
  - COVID-19 [Unknown]
  - Arthralgia [Unknown]
  - Onycholysis [Unknown]
  - Product dose omission in error [Unknown]

NARRATIVE: CASE EVENT DATE: 2020
